FAERS Safety Report 22021834 (Version 2)
Quarter: 2023Q1

REPORT INFORMATION
  Report Type: Spontaneous
  Country: US (occurrence: US)
  Receive Date: 20230222
  Receipt Date: 20230321
  Transmission Date: 20230418
  Serious: Yes (Hospitalization)
  Sender: FDA-Public Use
  Company Number: US-PFIZER INC-PV202300033723

PATIENT
  Age: 77 Year
  Sex: Female

DRUGS (1)
  1. IBRANCE [Suspect]
     Active Substance: PALBOCICLIB
     Dosage: UNK

REACTIONS (6)
  - White blood cell count decreased [Unknown]
  - COVID-19 [Unknown]
  - Neoplasm recurrence [Unknown]
  - Nausea [Unknown]
  - Mental disorder [Unknown]
  - Bone disorder [Unknown]
